FAERS Safety Report 13156350 (Version 4)
Quarter: 2017Q1

REPORT INFORMATION
  Report Type: Report from Study
  Country: KR (occurrence: KR)
  Receive Date: 20170126
  Receipt Date: 20170310
  Transmission Date: 20170428
  Serious: Yes (Death)
  Sender: FDA-Public Use
  Company Number: KR-ROCHE-1884525

PATIENT
  Age: 54 Year
  Sex: Female
  Weight: 52 kg

DRUGS (13)
  1. FAMOTIDINE. [Concomitant]
     Active Substance: FAMOTIDINE
     Indication: PROPHYLAXIS
     Route: 042
     Dates: start: 20170116, end: 20170116
  2. HYDROCORTISONE. [Concomitant]
     Active Substance: HYDROCORTISONE
     Indication: RASH
     Route: 062
     Dates: start: 20170116, end: 20170121
  3. CA GLUCONATE [Concomitant]
     Active Substance: CALCIUM GLUCONATE
     Indication: HYPOCALCAEMIA
     Route: 042
     Dates: start: 20170122, end: 20170122
  4. ATEZOLIZUMAB [Suspect]
     Active Substance: ATEZOLIZUMAB
     Indication: COLORECTAL ADENOCARCINOMA
     Dosage: RECEIVED HER MOST RECENT DOSE (840MG) OF ATEZOLIZUMAB ON 16/JAN/2017 AT 10:05
     Route: 042
     Dates: start: 20161205
  5. CHLORPHENIRAMINE. [Concomitant]
     Active Substance: CHLORPHENIRAMINE
     Indication: PRURITUS
     Route: 042
     Dates: start: 20170102, end: 20170102
  6. FAMOTIDINE. [Concomitant]
     Active Substance: FAMOTIDINE
     Indication: CHEST DISCOMFORT
     Route: 042
     Dates: start: 20170102, end: 20170102
  7. DOXICYCLINE [Concomitant]
     Indication: RASH
     Route: 048
     Dates: start: 20170116, end: 20170121
  8. ACETAMINOPHEN/TRAMADOL HYDROCHLORIDE [Concomitant]
     Active Substance: ACETAMINOPHEN\TRAMADOL HYDROCHLORIDE
     Indication: GROIN PAIN
     Dosage: ACETAMINOPHEN 325MG/TRAMADOL HYDROCHLORIDE 37.5MG
     Route: 048
     Dates: start: 20161219, end: 20170101
  9. POTASSIUM CHLORIDE. [Concomitant]
     Active Substance: POTASSIUM CHLORIDE
     Indication: HYPOKALAEMIA
     Route: 042
     Dates: start: 20170122, end: 20170122
  10. LOPERAMIDE [Concomitant]
     Active Substance: LOPERAMIDE
     Indication: DIARRHOEA
     Route: 048
     Dates: start: 20161216, end: 20161223
  11. MAGNESIUM HYDROXIDE. [Concomitant]
     Active Substance: MAGNESIUM HYDROXIDE
     Indication: CONSTIPATION
     Route: 048
     Dates: start: 20170116, end: 20170119
  12. CHLORPHENIRAMINE MALEATE. [Concomitant]
     Active Substance: CHLORPHENIRAMINE MALEATE
     Indication: PROPHYLAXIS
     Route: 042
     Dates: start: 20170116, end: 20170116
  13. COBIMETINIB [Suspect]
     Active Substance: COBIMETINIB
     Indication: COLORECTAL ADENOCARCINOMA
     Dosage: RECEIVED HER MOST RECENT DOSE (60MG) OF COBIMETINIB ON 21/JAN/2017
     Route: 048
     Dates: start: 20161205

REACTIONS (1)
  - Sepsis [Fatal]

NARRATIVE: CASE EVENT DATE: 20170119
